FAERS Safety Report 8091789-1 (Version None)
Quarter: 2012Q1

REPORT INFORMATION
  Report Type: 
  Country: None (occurrence: None)
  Receive Date: 20120129
  Receipt Date: 20111105
  Transmission Date: 20120608
  Serious: No
  Sender: FDA-Public Use
  Company Number: US-ABBOTT-11P-163-0871643-00

PATIENT
  Age: 61 Year
  Sex: Female

DRUGS (4)
  1. FISH OIL [Concomitant]
     Indication: SUPPLEMENTATION THERAPY
  2. CALTRATE [Concomitant]
     Indication: MINERAL SUPPLEMENTATION
  3. HUMIRA [Suspect]
     Indication: RHEUMATOID ARTHRITIS
     Dates: start: 20111026
  4. CENTRUM [Concomitant]
     Indication: VITAMIN SUPPLEMENTATION

REACTIONS (3)
  - INJECTION SITE PAIN [None]
  - URTICARIA [None]
  - PRURITUS [None]
